FAERS Safety Report 9239401 (Version 5)
Quarter: 2015Q2

REPORT INFORMATION
  Report Type: Spontaneous
  Country: US (occurrence: US)
  Receive Date: 20130418
  Receipt Date: 20150513
  Transmission Date: 20150821
  Serious: No
  Sender: FDA-Public Use
  Company Number: US-009507513-1304USA008256

PATIENT
  Sex: Male

DRUGS (1)
  1. PROPECIA [Suspect]
     Active Substance: FINASTERIDE
     Indication: ALOPECIA
     Dosage: 1 MG, QD
     Route: 048
     Dates: start: 20060725, end: 20140130

REACTIONS (9)
  - Cognitive disorder [Not Recovered/Not Resolved]
  - Panic disorder [Not Recovered/Not Resolved]
  - Anxiety [Not Recovered/Not Resolved]
  - Neck mass [Unknown]
  - Erectile dysfunction [Unknown]
  - Sexual dysfunction [Not Recovered/Not Resolved]
  - Depression [Not Recovered/Not Resolved]
  - Organic erectile dysfunction [Unknown]
  - Hypothyroidism [Unknown]

NARRATIVE: CASE EVENT DATE: 200701
